FAERS Safety Report 16674392 (Version 3)
Quarter: 2021Q1

REPORT INFORMATION
  Report Type: Spontaneous
  Country: PH (occurrence: PH)
  Receive Date: 20190806
  Receipt Date: 20210203
  Transmission Date: 20210419
  Serious: Yes (Other)
  Sender: FDA-Public Use
  Company Number: PH-JNJFOC-20190741165

PATIENT
  Age: 82 Year
  Sex: Male

DRUGS (2)
  1. STELARA [Suspect]
     Active Substance: USTEKINUMAB
  2. STELARA [Suspect]
     Active Substance: USTEKINUMAB
     Indication: PSORIASIS
     Dosage: LAST STELARA DOSE WAS JUNE.?EVERY 3?4 MONTHS.
     Route: 058
     Dates: start: 201407

REACTIONS (8)
  - Nodule [Unknown]
  - Eye injury [Unknown]
  - Fall [Unknown]
  - Eye contusion [Unknown]
  - Upper respiratory tract infection [Recovered/Resolved]
  - Angioplasty [Unknown]
  - Head injury [Unknown]
  - Vertigo [Unknown]

NARRATIVE: CASE EVENT DATE: 2016
